FAERS Safety Report 17923199 (Version 3)
Quarter: 2021Q3

REPORT INFORMATION
  Report Type: Spontaneous
  Country: CA (occurrence: CA)
  Receive Date: 20200622
  Receipt Date: 20210902
  Transmission Date: 20211014
  Serious: Yes (Other)
  Sender: FDA-Public Use
  Company Number: CA-ACCORD-185794

PATIENT
  Age: 57 Year
  Sex: Female

DRUGS (25)
  1. METHADONE [Concomitant]
     Active Substance: METHADONE HYDROCHLORIDE
     Indication: PRODUCT USED FOR UNKNOWN INDICATION
  2. NAPROXEN. [Concomitant]
     Active Substance: NAPROXEN
     Indication: PRODUCT USED FOR UNKNOWN INDICATION
  3. DEXPANTHENOL/METHYLCOBALAMIN/NICOTINAMIDE/PYRIDOXINE HYDROCHLORIDE/THIAMINE HYDROCHLORIDE [Concomitant]
     Route: 065
  4. THIAMINE. [Concomitant]
     Active Substance: THIAMINE
     Indication: PRODUCT USED FOR UNKNOWN INDICATION
  5. CAPECITABINE. [Suspect]
     Active Substance: CAPECITABINE
     Indication: BREAST CANCER METASTATIC
     Route: 048
  6. LETROZOLE. [Suspect]
     Active Substance: LETROZOLE
     Indication: BREAST CANCER METASTATIC
     Route: 065
  7. CONVALLARIA MAJALIS. [Concomitant]
     Active Substance: CONVALLARIA MAJALIS
     Indication: PRODUCT USED FOR UNKNOWN INDICATION
  8. CRATAEGUS LAEVIGATA [Concomitant]
     Indication: PRODUCT USED FOR UNKNOWN INDICATION
  9. FOLIC ACID. [Concomitant]
     Active Substance: FOLIC ACID
     Indication: PRODUCT USED FOR UNKNOWN INDICATION
  10. RIBOFLAVIN [Concomitant]
     Active Substance: RIBOFLAVIN
     Indication: PRODUCT USED FOR UNKNOWN INDICATION
  11. ASCORBIC ACID. [Concomitant]
     Active Substance: ASCORBIC ACID
     Indication: PRODUCT USED FOR UNKNOWN INDICATION
  12. EXEMESTANE. [Suspect]
     Active Substance: EXEMESTANE
     Indication: BREAST CANCER METASTATIC
     Route: 065
  13. TAMOXIFEN [Suspect]
     Active Substance: TAMOXIFEN
     Indication: BREAST CANCER METASTATIC
  14. NICOTINAMIDE [Concomitant]
     Active Substance: NIACINAMIDE
     Indication: PRODUCT USED FOR UNKNOWN INDICATION
  15. ZOMETA [Concomitant]
     Active Substance: ZOLEDRONIC ACID
     Dosage: SOLUTION INTRAVENOUS
     Route: 065
  16. CALCIUM CARBONATE/CALCIUM LACTOGLUCONATE [Concomitant]
     Active Substance: CALCIUM CARBONATE\CALCIUM LACTATE GLUCONATE
     Indication: PRODUCT USED FOR UNKNOWN INDICATION
  17. ERGOCALCIFEROL. [Concomitant]
     Active Substance: ERGOCALCIFEROL
     Indication: PRODUCT USED FOR UNKNOWN INDICATION
     Route: 065
  18. ALUMINIUM HYDROXIDE/MAGNESIUM HYDROXIDE [Concomitant]
     Active Substance: ALUMINUM HYDROXIDE\MAGNESIUM HYDROXIDE
     Indication: PRODUCT USED FOR UNKNOWN INDICATION
     Route: 065
  19. PROXYPHYLLINE [Concomitant]
     Active Substance: PROXYPHYLLINE
     Indication: PRODUCT USED FOR UNKNOWN INDICATION
  20. ZINC OXIDE. [Concomitant]
     Active Substance: ZINC OXIDE
     Indication: PRODUCT USED FOR UNKNOWN INDICATION
  21. IBRANCE [Suspect]
     Active Substance: PALBOCICLIB
     Indication: BREAST CANCER METASTATIC
     Route: 048
  22. UBIDECARENONE. [Concomitant]
     Active Substance: UBIDECARENONE
     Indication: PRODUCT USED FOR UNKNOWN INDICATION
  23. BENFOTIAMINE/HYDROXOCOBALAMIN/PYRIDOXINE [Concomitant]
     Route: 065
  24. DEXPANTHENOL. [Concomitant]
     Active Substance: DEXPANTHENOL
     Indication: PRODUCT USED FOR UNKNOWN INDICATION
  25. VITAMIN A [Concomitant]
     Active Substance: VITAMIN A
     Indication: PRODUCT USED FOR UNKNOWN INDICATION

REACTIONS (7)
  - Pain [Unknown]
  - Asthenia [Unknown]
  - Breast cancer metastatic [Unknown]
  - Neutropenia [Unknown]
  - Tumour marker increased [Unknown]
  - Fatigue [Unknown]
  - Malignant neoplasm progression [Unknown]
